FAERS Safety Report 25863529 (Version 1)
Quarter: 2025Q3

REPORT INFORMATION
  Report Type: Other
  Country: US (occurrence: US)
  Receive Date: 20250930
  Receipt Date: 20250930
  Transmission Date: 20251020
  Serious: Yes (Other)
  Sender: ANI
  Company Number: US-ANIPHARMA-030775

PATIENT
  Age: 3 Year
  Sex: Male

DRUGS (4)
  1. VALPROIC ACID [Suspect]
     Active Substance: VALPROIC ACID
     Indication: Petit mal epilepsy
  2. LEVOTHYROXINE [Suspect]
     Active Substance: LEVOTHYROXINE
     Indication: Hypothyroidism
  3. ETHOSUXIMIDE [Concomitant]
     Active Substance: ETHOSUXIMIDE
     Indication: Petit mal epilepsy
  4. VALPROIC ACID [Suspect]
     Active Substance: VALPROIC ACID
     Indication: Petit mal epilepsy

REACTIONS (3)
  - Hypothyroidism [Recovering/Resolving]
  - Increased appetite [Recovered/Resolved]
  - Psychomotor hyperactivity [Recovered/Resolved]
